FAERS Safety Report 8895695 (Version 1)
Quarter: 2012Q4

REPORT INFORMATION
  Report Type: Report from Study
  Country: DE (occurrence: DE)
  Receive Date: 20121107
  Receipt Date: 20121107
  Transmission Date: 20130627
  Serious: Yes (Hospitalization)
  Sender: FDA-Public Use
  Company Number: DE-009507513-1211DEU001420

PATIENT
  Age: 62 Year
  Sex: Female
  Weight: 66 kg

DRUGS (14)
  1. APREPITANT [Suspect]
     Indication: BREAST CANCER
     Dosage: 80 mg, qd
     Dates: start: 20121004, end: 20121006
  2. PERTUZUMAB [Suspect]
     Indication: BREAST CANCER
     Dosage: 1 in 3 wk
     Route: 042
  3. TRASTUZUMAB [Suspect]
     Indication: BREAST CANCER
     Dosage: 1 in 3 wk
     Route: 042
  4. GRANISETRON [Suspect]
     Indication: BREAST CANCER
  5. CYCLOPHOSPHAMIDE [Suspect]
     Indication: BREAST CANCER
     Dosage: 860 mg, 1 in 3 wk
     Route: 042
     Dates: start: 20121004
  6. EPIRUBICIN HYDROCHLORIDE [Suspect]
     Indication: BREAST CANCER
     Dosage: 172 mg, 1 in 3 wk
     Route: 042
     Dates: start: 20121004
  7. FLUOROURACIL [Suspect]
     Indication: BREAST CANCER
     Dosage: 860 mg, 1 in 3 wk
     Route: 042
     Dates: start: 20121004
  8. MESNA [Suspect]
     Indication: BREAST CANCER
  9. DEXAMETHASONE [Suspect]
     Dosage: 8 mg, UNK
     Dates: start: 20121004, end: 20121006
  10. EUTHYROX [Concomitant]
  11. LORATADINE [Concomitant]
     Dosage: 1 DF, UNK
  12. FLUTICASONE PROPIONATE (+) SALMETEROL XINAFOATE [Concomitant]
     Dosage: UNK
  13. CORTISONE ACETATE [Concomitant]
     Dosage: UNK, prn
  14. MUPIROCIN [Concomitant]
     Dosage: UNK, tid
     Dates: start: 20121004, end: 20121010

REACTIONS (1)
  - Pancreatitis [Recovered/Resolved]
